FAERS Safety Report 8163152-6 (Version None)
Quarter: 2012Q1

REPORT INFORMATION
  Report Type: 
  Country: None (occurrence: None)
  Receive Date: 20120224
  Receipt Date: 20120214
  Transmission Date: 20120608
  Serious: Yes (Other)
  Sender: FDA-Public Use
  Company Number: CN-PFIZER INC-2012046673

PATIENT
  Age: 3 Year
  Sex: Female

DRUGS (1)
  1. IBUPROFEN [Suspect]
     Indication: PYREXIA
     Route: 048
     Dates: start: 20120205, end: 20120205

REACTIONS (1)
  - FEBRILE CONVULSION [None]
